FAERS Safety Report 7904012-2 (Version None)
Quarter: 2011Q4

REPORT INFORMATION
  Report Type: 
  Country: None (occurrence: None)
  Receive Date: 20111109
  Receipt Date: 20111102
  Transmission Date: 20120403
  Serious: Yes (Hospitalization, Other)
  Sender: FDA-Public Use
  Company Number: DE-TEVA-300853GER

PATIENT
  Sex: Male

DRUGS (1)
  1. COPAXONE [Suspect]
     Indication: MULTIPLE SCLEROSIS
     Dosage: 20 MILLIGRAM;
     Route: 058
     Dates: start: 20100401

REACTIONS (7)
  - VENTRICULAR TACHYCARDIA [None]
  - DIZZINESS [None]
  - NASOPHARYNGITIS [None]
  - URINARY INCONTINENCE [None]
  - HYPERHIDROSIS [None]
  - ORAL HERPES [None]
  - SYNCOPE [None]
